FAERS Safety Report 17364808 (Version 1)
Quarter: 2020Q1

REPORT INFORMATION
  Report Type: Report from Study
  Country: US (occurrence: US)
  Receive Date: 20200204
  Receipt Date: 20200204
  Transmission Date: 20200409
  Serious: Yes (Hospitalization)
  Sender: FDA-Public Use
  Company Number: US-KARYOPHARM-2020KPT000097

PATIENT
  Age: 58 Year
  Weight: 101.5 kg

DRUGS (4)
  1. MELPHALAN. [Suspect]
     Active Substance: MELPHALAN
  2. MELPHALAN. [Suspect]
     Active Substance: MELPHALAN
     Indication: PLASMA CELL MYELOMA
  3. SELINEXOR [Suspect]
     Active Substance: SELINEXOR
     Indication: PLASMA CELL MYELOMA
     Dosage: UNK
     Dates: start: 20200112
  4. MELPHALAN. [Suspect]
     Active Substance: MELPHALAN
     Dosage: UNK

REACTIONS (1)
  - Pyrexia [Not Recovered/Not Resolved]

NARRATIVE: CASE EVENT DATE: 20200123
